FAERS Safety Report 5297634-1 (Version None)
Quarter: 2007Q2

REPORT INFORMATION
  Report Type: 
  Country: None (occurrence: None)
  Receive Date: 20070409
  Receipt Date: 20070321
  Transmission Date: 20071010
  Serious: No
  Sender: FDA-Public Use
  Company Number: 200612828DE

PATIENT
  Age: 27 Year
  Sex: Female

DRUGS (1)
  1. LEFLUNOMIDE [Suspect]
     Dosage: 20 MG/DAY PO
     Route: 048
     Dates: start: 20060101

REACTIONS (1)
  - DRUG EXPOSURE DURING PREGNANCY [None]
